FAERS Safety Report 21935327 (Version 1)
Quarter: 2023Q1

REPORT INFORMATION
  Report Type: Spontaneous
  Country: US (occurrence: US)
  Receive Date: 20230201
  Receipt Date: 20230201
  Transmission Date: 20230418
  Serious: No
  Sender: FDA-Public Use
  Company Number: US-PFIZER INC-202201349686

PATIENT
  Age: 12 Year
  Sex: Male
  Weight: 52.16 kg

DRUGS (1)
  1. GENOTROPIN [Suspect]
     Active Substance: SOMATROPIN
     Indication: Growth hormone deficiency
     Dosage: 1.4 INJECTION ONCE A DAY DAILY
     Dates: end: 20221130

REACTIONS (5)
  - Drug dose omission by device [Unknown]
  - Device delivery system issue [Unknown]
  - Device power source issue [Unknown]
  - Device information output issue [Unknown]
  - Poor quality device used [Unknown]

NARRATIVE: CASE EVENT DATE: 20221101
